FAERS Safety Report 12504450 (Version 9)
Quarter: 2016Q4

REPORT INFORMATION
  Report Type: Report from Study
  Country: CA (occurrence: CA)
  Receive Date: 20160628
  Receipt Date: 20161230
  Transmission Date: 20170207
  Serious: Yes (Hospitalization, Other)
  Sender: FDA-Public Use
  Company Number: PHHY2016CA041686

PATIENT
  Age: 58 Year
  Sex: Female

DRUGS (8)
  1. SANDOSTATIN LAR DEPOT [Suspect]
     Active Substance: OCTREOTIDE ACETATE
     Indication: CARCINOID TUMOUR
     Dosage: 30 MG, QMO (EVERY 4 WEEKS)
     Route: 030
     Dates: start: 20160301
  2. SANDOSTATIN LAR DEPOT [Suspect]
     Active Substance: OCTREOTIDE ACETATE
     Dosage: 40 MG, EVERY THREE WEEKS
     Route: 030
     Dates: start: 20160704
  3. VITAMIN B12 [Concomitant]
     Active Substance: CYANOCOBALAMIN
     Indication: PRODUCT USED FOR UNKNOWN INDICATION
     Route: 065
  4. PANTOLOC [Concomitant]
     Active Substance: PANTOPRAZOLE SODIUM
     Indication: PRODUCT USED FOR UNKNOWN INDICATION
     Route: 065
  5. PANTOLOC [Concomitant]
     Active Substance: PANTOPRAZOLE SODIUM
     Dosage: 40 MG, QOD
     Route: 065
  6. CITALOPRAM [Concomitant]
     Active Substance: CITALOPRAM HYDROBROMIDE
     Dosage: 20 MG, UNK
     Route: 065
  7. SANDOSTATIN LAR DEPOT [Suspect]
     Active Substance: OCTREOTIDE ACETATE
     Dosage: 40 MG, QMO (EVERY 4 WEEKS)
     Route: 030
     Dates: start: 20160510
  8. CITALOPRAM [Concomitant]
     Active Substance: CITALOPRAM HYDROBROMIDE
     Indication: PRODUCT USED FOR UNKNOWN INDICATION
     Dosage: 10 MG, UNK
     Route: 065

REACTIONS (36)
  - Gallbladder necrosis [Unknown]
  - Nausea [Not Recovered/Not Resolved]
  - Insomnia [Unknown]
  - Migraine [Unknown]
  - Abdominal hernia [Unknown]
  - Blood potassium decreased [Unknown]
  - Abdominal discomfort [Unknown]
  - Injection site induration [Unknown]
  - Therapeutic product ineffective [Unknown]
  - Vomiting [Unknown]
  - Musculoskeletal stiffness [Unknown]
  - Fear of death [Unknown]
  - Flatulence [Unknown]
  - Diarrhoea [Recovering/Resolving]
  - Dyspnoea [Unknown]
  - Facial paralysis [Unknown]
  - Decreased appetite [Unknown]
  - Abdominal pain lower [Unknown]
  - Hyperventilation [Unknown]
  - Loss of consciousness [Unknown]
  - Acne [Unknown]
  - Hyperchlorhydria [Unknown]
  - Inappropriate schedule of drug administration [Unknown]
  - Mouth ulceration [Unknown]
  - Anxiety [Unknown]
  - Gait disturbance [Unknown]
  - Constipation [Unknown]
  - Fatigue [Unknown]
  - Hypokalaemia [Unknown]
  - Abdominal pain [Recovering/Resolving]
  - Hypothyroidism [Unknown]
  - Oedema peripheral [Unknown]
  - Headache [Unknown]
  - Abdominal distension [Unknown]
  - Blood pressure increased [Unknown]
  - Injection site pain [Unknown]

NARRATIVE: CASE EVENT DATE: 2016
